FAERS Safety Report 9243418 (Version 3)
Quarter: 2015Q1

REPORT INFORMATION
  Report Type: Spontaneous
  Country: US (occurrence: US)
  Receive Date: 20130421
  Receipt Date: 20150304
  Transmission Date: 20150721
  Serious: Yes (Hospitalization)
  Sender: FDA-Public Use
  Company Number: US-AMGEN-USASP2013027215

PATIENT
  Age: 71 Year
  Sex: Female

DRUGS (1)
  1. ENBREL [Suspect]
     Active Substance: ETANERCEPT
     Indication: RHEUMATOID ARTHRITIS
     Dosage: 50 MG, QWK
     Route: 065
     Dates: start: 20130301

REACTIONS (10)
  - Fall [Recovered/Resolved]
  - Rotator cuff repair [Recovered/Resolved]
  - Pain [Not Recovered/Not Resolved]
  - Joint injury [Recovered/Resolved]
  - Head injury [Recovered/Resolved]
  - Foot fracture [Recovered/Resolved]
  - Ligament sprain [Recovered/Resolved]
  - Knee arthroplasty [Recovered/Resolved]
  - Joint swelling [Recovered/Resolved]
  - Local swelling [Recovered/Resolved]

NARRATIVE: CASE EVENT DATE: 20130404
